FAERS Safety Report 8483050-8 (Version None)
Quarter: 2012Q3

REPORT INFORMATION
  Report Type: 
  Country: None (occurrence: None)
  Receive Date: 20120702
  Receipt Date: 20120622
  Transmission Date: 20120928
  Serious: Yes (Other)
  Sender: FDA-Public Use
  Company Number: US-ABBOTT-12P-163-0949537-00

PATIENT
  Sex: Female

DRUGS (2)
  1. NORETHINDRONE ACETATE [Concomitant]
     Indication: ENDOMETRIOSIS
     Dates: start: 20120313
  2. LUPRON DEPOT [Suspect]
     Indication: ENDOMETRIOSIS
     Dates: start: 20120313

REACTIONS (3)
  - PEPTIC ULCER [None]
  - PEPTIC ULCER PERFORATION [None]
  - HAEMORRHAGE [None]
